FAERS Safety Report 10083120 (Version 2)
Quarter: 2014Q2

REPORT INFORMATION
  Report Type: Spontaneous
  Country: US (occurrence: US)
  Receive Date: 20140417
  Receipt Date: 20140623
  Transmission Date: 20141212
  Serious: Yes (Hospitalization)
  Sender: FDA-Public Use
  Company Number: US-BIOGENIDEC-2014BI034632

PATIENT
  Age: 33 Year
  Sex: Female

DRUGS (1)
  1. AVONEX [Suspect]
     Indication: MULTIPLE SCLEROSIS
     Route: 030
     Dates: start: 20130519

REACTIONS (4)
  - Multiple sclerosis relapse [Recovered/Resolved]
  - Treatment failure [Recovered/Resolved]
  - Influenza like illness [Recovered/Resolved]
  - Hot flush [Recovered/Resolved]
